FAERS Safety Report 18260009 (Version 1)
Quarter: 2020Q3

REPORT INFORMATION
  Report Type: Report from Study
  Country: US (occurrence: US)
  Receive Date: 20200912
  Receipt Date: 20200912
  Transmission Date: 20201103
  Serious: Yes (Other)
  Sender: FDA-Public Use
  Company Number: US-UCBSA-2020035050

PATIENT
  Sex: Male

DRUGS (1)
  1. CERTOLIZUMAB PEGOL [Suspect]
     Active Substance: CERTOLIZUMAB PEGOL
     Indication: RHEUMATOID ARTHRITIS
     Dosage: UNK, MONTHLY (QM)
     Dates: end: 202002

REACTIONS (2)
  - Infection [Not Recovered/Not Resolved]
  - Hip arthroplasty [Not Recovered/Not Resolved]
